FAERS Safety Report 17359991 (Version 1)
Quarter: 2020Q1

REPORT INFORMATION
  Report Type: Spontaneous
  Country: ES (occurrence: ES)
  Receive Date: 20200203
  Receipt Date: 20200203
  Transmission Date: 20200409
  Serious: Yes (Other)
  Sender: FDA-Public Use
  Company Number: ES-AUROBINDO-AUR-APL-2020-004753

PATIENT
  Age: 2 Year
  Sex: Male

DRUGS (2)
  1. MINOXIDIL. [Suspect]
     Active Substance: MINOXIDIL
     Indication: GASTROOESOPHAGEAL REFLUX DISEASE
     Dosage: UNK
     Route: 048
     Dates: start: 201905, end: 201906
  2. OMEPRAZOLE. [Suspect]
     Active Substance: OMEPRAZOLE
     Indication: GASTROOESOPHAGEAL REFLUX DISEASE
     Dosage: UNK
     Route: 048
     Dates: start: 201905, end: 20190819

REACTIONS (4)
  - Irritability [Recovering/Resolving]
  - Ceruloplasmin increased [Recovering/Resolving]
  - Blood copper increased [Recovering/Resolving]
  - Hypertrichosis [Recovering/Resolving]

NARRATIVE: CASE EVENT DATE: 20190615
